FAERS Safety Report 6361305-0 (Version None)
Quarter: 2009Q3

REPORT INFORMATION
  Report Type: 
  Country: None (occurrence: None)
  Receive Date: 20090918
  Receipt Date: 20090914
  Transmission Date: 20100115
  Serious: Yes (Hospitalization, Congenital Anomaly)
  Sender: FDA-Public Use
  Company Number: A0680323A

PATIENT
  Sex: Male
  Weight: 0.9 kg

DRUGS (9)
  1. PAXIL [Suspect]
     Indication: DEPRESSION
     Dosage: 20MG PER DAY
     Dates: start: 19980301, end: 20000501
  2. VITAMIN TAB [Concomitant]
  3. NAPROXEN [Concomitant]
  4. IBUPROFEN [Concomitant]
  5. PEPCID [Concomitant]
  6. TERAZOL 1 [Concomitant]
     Dates: start: 19990301
  7. METROGEL [Concomitant]
     Dates: start: 19990201
  8. PHENERGAN [Concomitant]
  9. REGLAN [Concomitant]

REACTIONS (3)
  - CARDIAC MURMUR [None]
  - DRUG EXPOSURE DURING PREGNANCY [None]
  - MULTIPLE CONGENITAL ABNORMALITIES [None]
